FAERS Safety Report 8992339 (Version 2)
Quarter: 2013Q1

REPORT INFORMATION
  Report Type: Spontaneous
  Country: DE (occurrence: ES)
  Receive Date: 20121231
  Receipt Date: 20130131
  Transmission Date: 20140127
  Serious: Yes (Hospitalization)
  Sender: FDA-Public Use
  Company Number: ES-FRI-1000041328

PATIENT
  Age: 49 Year
  Sex: Female
  Weight: 100 kg

DRUGS (8)
  1. ROFLUMILAST [Suspect]
     Indication: CHRONIC OBSTRUCTIVE PULMONARY DISEASE
     Dosage: 500 MCG
     Route: 048
     Dates: start: 201211
  2. SEGURIL [Concomitant]
     Dosage: 1 DF
     Route: 048
  3. INFLUENZA VACCINE [Concomitant]
     Dosage: 0.0027 DF
     Route: 030
     Dates: start: 201210, end: 201210
  4. SPIRIVA [Concomitant]
  5. INHALADUO [Concomitant]
  6. JOSAMINA [Concomitant]
     Dosage: 1 DF
     Route: 048
  7. ALDACTONE [Concomitant]
     Dosage: 1 DF
     Route: 048
  8. PARACETAMOL [Concomitant]
     Dosage: 3000 MCG

REACTIONS (1)
  - Nasopharyngitis [Recovered/Resolved]
